FAERS Safety Report 10907325 (Version 1)
Quarter: 2015Q1

REPORT INFORMATION
  Report Type: Spontaneous
  Country: US (occurrence: None)
  Receive Date: 20150309
  Receipt Date: 20150309
  Transmission Date: 20150721
  Serious: Yes (Hospitalization, Other)
  Sender: FDA-Public Use
  Company Number: None

PATIENT
  Age: 18 Year
  Sex: Female
  Weight: 63.5 kg

DRUGS (3)
  1. THE VITAMIN SHOPPE ULTIMATE WOMAN VITAMIN [Concomitant]
  2. LUNESTA [Concomitant]
     Active Substance: ESZOPICLONE
  3. WELLBUTRIN [Suspect]
     Active Substance: BUPROPION HYDROCHLORIDE
     Indication: DEPRESSION
     Dosage: 3 PILLS
     Route: 048
     Dates: start: 20140411, end: 20150227

REACTIONS (3)
  - Fall [None]
  - Drug dose omission [None]
  - Generalised tonic-clonic seizure [None]

NARRATIVE: CASE EVENT DATE: 20150227
